FAERS Safety Report 25197130 (Version 2)
Quarter: 2025Q2

REPORT INFORMATION
  Report Type: Report from Study
  Country: US (occurrence: US)
  Receive Date: 20250415
  Receipt Date: 20250507
  Transmission Date: 20250716
  Serious: Yes (Other)
  Sender: ABBVIE
  Company Number: US-ABBVIE-6178460

PATIENT
  Age: 67 Year
  Sex: Male
  Weight: 147.41 kg

DRUGS (4)
  1. HUMIRA [Suspect]
     Active Substance: ADALIMUMAB
     Indication: Axial spondyloarthritis
     Route: 058
     Dates: start: 20241102, end: 20250201
  2. HUMIRA [Suspect]
     Active Substance: ADALIMUMAB
     Indication: Ankylosing spondylitis
     Route: 058
     Dates: start: 20250318
  3. HUMIRA [Suspect]
     Active Substance: ADALIMUMAB
     Indication: Iritis
  4. HUMIRA [Suspect]
     Active Substance: ADALIMUMAB
     Indication: Autoimmune eye disorder

REACTIONS (7)
  - Autoimmune eye disorder [Recovering/Resolving]
  - Iritis [Recovering/Resolving]
  - Visual impairment [Recovered/Resolved]
  - Vision blurred [Recovered/Resolved]
  - Product use in unapproved indication [Unknown]
  - Vision blurred [Recovering/Resolving]
  - Iritis [Not Recovered/Not Resolved]

NARRATIVE: CASE EVENT DATE: 20250324
